FAERS Safety Report 14388204 (Version 2)
Quarter: 2019Q2

REPORT INFORMATION
  Report Type: Spontaneous
  Country: US (occurrence: US)
  Receive Date: 20180115
  Receipt Date: 20190409
  Transmission Date: 20190711
  Serious: Yes (Other)
  Sender: FDA-Public Use
  Company Number: US-SA-2017SA215381

PATIENT
  Age: 63 Year
  Sex: Female
  Weight: 116 kg

DRUGS (19)
  1. DOCETAXEL. [Suspect]
     Active Substance: DOCETAXEL
     Dosage: 120 MG, Q3W
     Route: 042
     Dates: start: 20141212, end: 20141212
  2. MONTELUKAST [Concomitant]
     Active Substance: MONTELUKAST SODIUM
     Dosage: UNK UNK, UNK
     Route: 065
     Dates: start: 20070101, end: 20141231
  3. HYDROCHLOROTHIAZIDE. [Concomitant]
     Active Substance: HYDROCHLOROTHIAZIDE
     Dosage: UNK UNK, UNK
     Route: 065
     Dates: start: 20000101
  4. CYCLOPHOSPHAMIDE. [Concomitant]
     Active Substance: CYCLOPHOSPHAMIDE
  5. BENAZEPRIL [Concomitant]
     Active Substance: BENAZEPRIL HYDROCHLORIDE
     Dosage: UNK UNK, UNK
     Route: 065
     Dates: start: 20070101, end: 20141231
  6. WARFARIN [Concomitant]
     Active Substance: WARFARIN
     Dosage: UNK UNK, UNK
     Route: 065
     Dates: start: 20070101, end: 20141231
  7. DETROL [Concomitant]
     Active Substance: TOLTERODINE TARTRATE
     Dosage: UNK UNK, UNK
     Route: 065
     Dates: start: 20070101, end: 20141231
  8. NEXIUM [Concomitant]
     Active Substance: ESOMEPRAZOLE MAGNESIUM
     Dosage: UNK UNK, UNK
     Route: 065
     Dates: start: 20070101, end: 20141231
  9. FUROSEMIDE. [Concomitant]
     Active Substance: FUROSEMIDE
     Dosage: UNK UNK, UNK
     Route: 065
     Dates: start: 20070101, end: 20141231
  10. CARBOPLATIN. [Concomitant]
     Active Substance: CARBOPLATIN
  11. DEXAMETHASONE. [Concomitant]
     Active Substance: DEXAMETHASONE
  12. NEOSAR [Concomitant]
     Active Substance: CYCLOPHOSPHAMIDE
     Dosage: UNK UNK, UNK
     Route: 065
  13. DOCETAXEL. [Suspect]
     Active Substance: DOCETAXEL
     Indication: BREAST CANCER FEMALE
     Dosage: 120 MG, Q3W
     Route: 042
     Dates: start: 20140519, end: 20140519
  14. HEPARIN SODIUM. [Concomitant]
     Active Substance: HEPARIN SODIUM
  15. BENADRYL [Concomitant]
     Active Substance: DIPHENHYDRAMINE HYDROCHLORIDE
  16. AMLODIPINE [Concomitant]
     Active Substance: AMLODIPINE BESYLATE
     Dosage: UNK UNK, UNK
     Route: 065
     Dates: start: 20000101
  17. ADRIAMYCIN [Concomitant]
     Active Substance: DOXORUBICIN HYDROCHLORIDE
  18. PARAPLATIN [Concomitant]
     Active Substance: CARBOPLATIN
     Dosage: UNK UNK, UNK
     Route: 065
  19. ADRIAMYCIN [Concomitant]
     Active Substance: DOXORUBICIN HYDROCHLORIDE
     Dosage: UNK UNK, UNK
     Route: 065

REACTIONS (6)
  - Pain [Unknown]
  - Impaired quality of life [Unknown]
  - Emotional distress [Unknown]
  - Alopecia [Not Recovered/Not Resolved]
  - Anxiety [Unknown]
  - Psychological trauma [Unknown]

NARRATIVE: CASE EVENT DATE: 20140320
